FAERS Safety Report 6094139-5 (Version None)
Quarter: 2009Q1

REPORT INFORMATION
  Report Type: 
  Country: None (occurrence: None)
  Receive Date: 20090224
  Receipt Date: 20090224
  Transmission Date: 20090719
  Serious: Yes (Other)
  Sender: FDA-Public Use
  Company Number: None

PATIENT
  Age: 6 Year
  Sex: Male
  Weight: 22.2263 kg

DRUGS (1)
  1. AMOXICILLIN [Suspect]
     Indication: PHARYNGITIS STREPTOCOCCAL
     Dosage: 1 1/2 TSP EVERY 12 HOURS PO
     Route: 048
     Dates: start: 20090212, end: 20090219

REACTIONS (3)
  - DRUG HYPERSENSITIVITY [None]
  - PRURITUS [None]
  - URTICARIA [None]
